FAERS Safety Report 10718155 (Version 1)
Quarter: 2015Q1

REPORT INFORMATION
  Report Type: Report from Study
  Country: MX (occurrence: MX)
  Receive Date: 20150118
  Receipt Date: 20150118
  Transmission Date: 20150721
  Serious: Yes (Hospitalization)
  Sender: FDA-Public Use
  Company Number: US-ASTRAZENECA-2015SE04127

PATIENT
  Age: 91 Day
  Sex: Male

DRUGS (1)
  1. SYNAGIS [Suspect]
     Active Substance: PALIVIZUMAB
     Indication: PREMATURE BABY
     Route: 050
     Dates: start: 20140926

REACTIONS (2)
  - Respiratory disorder [Recovered/Resolved]
  - Infantile colic [Recovered/Resolved]

NARRATIVE: CASE EVENT DATE: 20141222
